FAERS Safety Report 8049381-0 (Version None)
Quarter: 2012Q1

REPORT INFORMATION
  Report Type: 
  Country: None (occurrence: None)
  Receive Date: 20120117
  Receipt Date: 20120112
  Transmission Date: 20120608
  Serious: Yes (Hospitalization)
  Sender: FDA-Public Use
  Company Number: PL-ROCHE-1030075

PATIENT
  Sex: Female
  Weight: 117 kg

DRUGS (5)
  1. LEVOTHYROXINE SODIUM [Concomitant]
  2. AVASTIN [Suspect]
     Indication: MACULAR DEGENERATION
     Route: 050
  3. GLUCOBAY [Concomitant]
  4. CLOZAPINE [Concomitant]
     Dosage: DRUG KLOZAPOL
  5. FUROSEMIDE [Concomitant]

REACTIONS (5)
  - VISUAL ACUITY REDUCED [None]
  - LACRIMATION INCREASED [None]
  - PHOTOPHOBIA [None]
  - OCULAR HYPERAEMIA [None]
  - PAIN [None]
